FAERS Safety Report 6936616-8 (Version None)
Quarter: 2010Q3

REPORT INFORMATION
  Report Type: 
  Country: None (occurrence: None)
  Receive Date: 20100823
  Receipt Date: 20100812
  Transmission Date: 20110219
  Serious: Yes (Hospitalization)
  Sender: FDA-Public Use
  Company Number: DE-ROCHE-720660

PATIENT
  Sex: Female
  Weight: 78 kg

DRUGS (7)
  1. TRASTUZUMAB [Suspect]
     Indication: BREAST CANCER
     Dosage: DOSAGE FORM: 250 ML NACL.
     Route: 065
     Dates: start: 20100115, end: 20100610
  2. DOCETAXEL [Suspect]
     Indication: BREAST CANCER
     Route: 042
     Dates: start: 20100115, end: 20100610
  3. CYCLOPHOSPHAMIDE [Suspect]
     Indication: BREAST CANCER
     Dosage: DOSAGE FORM 500 NACL
     Route: 065
     Dates: start: 20100115
  4. EPIRUBICIN [Suspect]
     Indication: BREAST CANCER
     Dosage: DOSAGE FORM 250ML NACL
     Route: 065
     Dates: start: 20100115
  5. INSULIN [Concomitant]
     Dates: start: 19880101
  6. LEVOTHYROXINE SODIUM [Concomitant]
  7. SIMVASTATIN [Concomitant]

REACTIONS (1)
  - PERICARDITIS [None]
